FAERS Safety Report 7476527-5 (Version None)
Quarter: 2011Q2

REPORT INFORMATION
  Report Type: 
  Country: None (occurrence: None)
  Receive Date: 20110512
  Receipt Date: 20110504
  Transmission Date: 20111010
  Serious: Yes (Hospitalization)
  Sender: FDA-Public Use
  Company Number: FR-PFIZER INC-HQWYE646426OCT06

PATIENT
  Age: 43 Year
  Sex: Male
  Weight: 75 kg

DRUGS (5)
  1. IMOVANE [Suspect]
     Dosage: 7.5 MG, 1X/DAY
     Route: 048
     Dates: start: 20060615
  2. PANTOPRAZOLE [Suspect]
     Dosage: 20 MG, 1X/DAY
     Route: 048
     Dates: start: 20060914, end: 20060926
  3. IBUPROFEN [Suspect]
     Dosage: 400 MG, 1X/DAY
     Route: 048
     Dates: start: 20060925, end: 20060926
  4. PIROXICAM [Suspect]
     Dosage: 20 MG, 1X/DAY
     Route: 048
     Dates: start: 20060914, end: 20060926
  5. EFFEXOR XR [Suspect]
     Indication: DEPRESSION
     Dosage: 150.0 MG, TOTAL DAILY
     Route: 048
     Dates: start: 20060615, end: 20060927

REACTIONS (1)
  - RHABDOMYOLYSIS [None]
